FAERS Safety Report 10038625 (Version 1)
Quarter: 2014Q1

REPORT INFORMATION
  Report Type: Spontaneous
  Country: US (occurrence: None)
  Receive Date: 20140306
  Receipt Date: 20140306
  Transmission Date: 20141002
  Serious: Yes (Hospitalization)
  Sender: FDA-Public Use
  Company Number: 163-21880-12060244

PATIENT
  Age: 69 Year
  Sex: Male

DRUGS (10)
  1. REVLIMID [Suspect]
     Indication: PLASMA CELL MYELOMA
     Dosage: 10 MG, 21 IN 21 D, PO
     Route: 048
     Dates: start: 20120423
  2. ACYCLOVIR [Concomitant]
  3. ASPIRIN (ACETYLSALICYLIC ACID) [Concomitant]
  4. CALCIUM +D [Concomitant]
  5. CETRIZINE (CETIRIZINE HYDROCHLORIDE) [Concomitant]
  6. ENALAPRIL (ENALAPRIL) [Concomitant]
  7. GABAPENTIN (GABAPENTIN) [Concomitant]
  8. HYDROCHLOROTHIAZIDE (HYDROCHLOROTHIAZIDE) [Concomitant]
  9. METOPROLOL (METOPROLOL) [Concomitant]
  10. OMEPRAZOLE (OMEPRAZOLE) [Concomitant]

REACTIONS (1)
  - Respiratory tract infection [None]
